FAERS Safety Report 26042309 (Version 1)
Quarter: 2025Q4

REPORT INFORMATION
  Report Type: Spontaneous
  Country: US (occurrence: US)
  Receive Date: 20251113
  Receipt Date: 20251113
  Transmission Date: 20260118
  Serious: Yes (Hospitalization)
  Sender: FRESENIUS KABI
  Company Number: US-FreseniusKabi-FK202515407

PATIENT
  Age: 42 Year
  Sex: Male

DRUGS (1)
  1. FLUPHENAZINE DECANOATE [Suspect]
     Active Substance: FLUPHENAZINE DECANOATE
     Indication: Product used for unknown indication
     Dosage: DOSE- TENFOLD DOSE (125 MG)?PATIENT?S USUAL INTRAMUSCULAR DOSING IS 12.5 MG EVERY FOUR WEEKS; THUS,
     Route: 030

REACTIONS (1)
  - Accidental overdose [Unknown]
